FAERS Safety Report 15499763 (Version 2)
Quarter: 2018Q4

REPORT INFORMATION
  Report Type: Spontaneous
  Country: DE (occurrence: DE)
  Receive Date: 20181015
  Receipt Date: 20181123
  Transmission Date: 20190205
  Serious: Yes (Other)
  Sender: FDA-Public Use
  Company Number: DE-ABBVIE-18K-062-2519401-00

PATIENT
  Age: 40 Year
  Sex: Male
  Weight: 96 kg

DRUGS (1)
  1. HUMIRA [Suspect]
     Active Substance: ADALIMUMAB
     Indication: CROHN^S DISEASE
     Route: 058
     Dates: start: 201805

REACTIONS (1)
  - Incisional hernia [Recovered/Resolved]

NARRATIVE: CASE EVENT DATE: 201806
